FAERS Safety Report 9228437 (Version 5)
Quarter: 2013Q2

REPORT INFORMATION
  Report Type: Spontaneous
  Country: FR (occurrence: FR)
  Receive Date: 20130412
  Receipt Date: 20130613
  Transmission Date: 20140414
  Serious: Yes (Life-Threatening, Hospitalization)
  Sender: FDA-Public Use
  Company Number: FR-VERTEX PHARMACEUTICALS INC.-2013-004836

PATIENT
  Age: 63 Year
  Sex: Female

DRUGS (15)
  1. INCIVO [Suspect]
     Indication: CHRONIC HEPATITIS C
     Dosage: 2250 MG, QD
     Route: 048
     Dates: end: 20120913
  2. INCIVO [Suspect]
     Indication: HEPATITIS C
     Dosage: 2250 MG, QD
     Route: 048
     Dates: start: 20120726, end: 20120813
  3. PEGINTERFERON ALFA-2A [Suspect]
     Indication: CHRONIC HEPATITIS C
     Dosage: DOSAGE FORM: UNSPECIFIED
     Route: 058
     Dates: start: 20120726, end: 20120906
  4. RIBAVIRIN [Suspect]
     Indication: CHRONIC HEPATITIS C
     Dosage: DOSAGE FORM: UNKNOWN
     Route: 048
     Dates: end: 20120913
  5. RIBAVIRIN [Suspect]
     Dosage: DOSAGE FORM: UNKNOWN
     Route: 048
     Dates: start: 20120726, end: 20120813
  6. FUROSEMIDE [Suspect]
     Indication: PRODUCT USED FOR UNKNOWN INDICATION
     Dosage: DOSAGE FORM: UNSPECIFIED
     Route: 065
     Dates: start: 20120712
  7. SPIRONOLACTONE [Concomitant]
     Dates: start: 20120712
  8. BETAMETHASONE [Concomitant]
     Dates: start: 20120716
  9. MEQUITAZINE [Concomitant]
     Dates: start: 20120716
  10. PARACETAMOL [Concomitant]
     Dosage: UNK
     Dates: start: 20120726
  11. DIFFU-K [Concomitant]
  12. PROPRANOLOL [Concomitant]
  13. CLAFORAN [Concomitant]
  14. OFLOCET [Concomitant]
  15. ORBENINE [Concomitant]
     Dosage: DOSAGE FORM: UNSPECIFIED

REACTIONS (5)
  - Sepsis [Recovered/Resolved]
  - Urinary tract infection [Unknown]
  - Renal failure acute [Recovered/Resolved]
  - Hypokalaemia [Unknown]
  - Hyperbilirubinaemia [Recovered/Resolved]
